FAERS Safety Report 8965113 (Version 4)
Quarter: 2013Q1

REPORT INFORMATION
  Report Type: Spontaneous
  Country: DE (occurrence: DE)
  Receive Date: 20121214
  Receipt Date: 20130205
  Transmission Date: 20140127
  Serious: Yes (Disabling, Other)
  Sender: FDA-Public Use
  Company Number: DE-OTSUKA-EU-2012-10399

PATIENT
  Age: 34 None
  Sex: Male

DRUGS (13)
  1. SAMSCA [Suspect]
     Indication: INAPPROPRIATE ANTIDIURETIC HORMONE SECRETION
     Dosage: UNK, UNKNOWN
     Route: 065
     Dates: start: 201111, end: 201111
  2. SAMSCA [Suspect]
     Dosage: 15 MG MILLIGRAM(S), SINGLE
     Route: 048
     Dates: start: 201201, end: 201201
  3. SAMSCA [Suspect]
     Dosage: 15 MG MILLIGRAM(S), DAILY DOSE
     Route: 048
     Dates: start: 20120125, end: 20120201
  4. SAMSCA [Suspect]
     Dosage: 7.5 MG MILLIGRAM(S), BID
     Dates: start: 201202, end: 201202
  5. SAMSCA [Suspect]
     Dosage: 3.75 MG MILLIGRAM(S), UNKNOWN
     Dates: end: 20120705
  6. SAMSCA [Suspect]
     Dosage: 7.5 MG MILLIGRAM(S), UNKNOWN
     Dates: start: 201202, end: 2012
  7. NACL [Concomitant]
  8. HALOPERIDOL [Concomitant]
     Dosage: UNK, UNKNOWN
     Route: 065
     Dates: start: 201201
  9. OXCARBAZEPINE [Concomitant]
     Dosage: UNK, UNKNOWN
     Route: 065
     Dates: start: 201201
  10. TORASEMID [Concomitant]
     Dosage: 10 MG MILLIGRAM(S), DAILY DOSE
     Dates: start: 2011
  11. DIAZEPAM [Concomitant]
  12. MELPERONE [Concomitant]
  13. THIAMINE [Suspect]
     Dosage: UNK
     Dates: start: 201201, end: 201201

REACTIONS (12)
  - Rapid correction of hyponatraemia [Unknown]
  - Paraparesis [Recovering/Resolving]
  - Loss of consciousness [Unknown]
  - Dysarthria [Recovering/Resolving]
  - Mental disorder [Unknown]
  - Cognitive disorder [Unknown]
  - Disturbance in attention [Unknown]
  - Fall [Unknown]
  - General physical health deterioration [Unknown]
  - Faecal incontinence [Unknown]
  - Wrong technique in drug usage process [Unknown]
  - Incorrect drug administration rate [Unknown]
